FAERS Safety Report 5668557-0 (Version None)
Quarter: 2008Q1

REPORT INFORMATION
  Report Type: 
  Country: None (occurrence: None)
  Receive Date: 20080312
  Receipt Date: 20080303
  Transmission Date: 20080703
  Serious: Yes (Other)
  Sender: FDA-Public Use
  Company Number: 163-20785-08020238

PATIENT
  Sex: Female

DRUGS (2)
  1. THALOMID [Suspect]
     Indication: MULTIPLE MYELOMA
     Dosage: 100-50 MG, DAILY; ORAL, 200 MG, 4 IN 1 D, ORAL
     Route: 048
     Dates: start: 20021001, end: 20020101
  2. THALOMID [Suspect]
     Indication: MULTIPLE MYELOMA
     Dosage: 100-50 MG, DAILY; ORAL, 200 MG, 4 IN 1 D, ORAL
     Route: 048
     Dates: start: 20060807

REACTIONS (2)
  - FALL [None]
  - HIP FRACTURE [None]
